FAERS Safety Report 14676270 (Version 1)
Quarter: 2018Q1

REPORT INFORMATION
  Report Type: Spontaneous
  Country: US (occurrence: US)
  Receive Date: 20180323
  Receipt Date: 20180323
  Transmission Date: 20180509
  Serious: Yes (Other)
  Sender: FDA-Public Use
  Company Number: None

PATIENT
  Age: 83 Year
  Sex: Female
  Weight: 58.06 kg

DRUGS (14)
  1. VITAMIN C [Concomitant]
     Active Substance: ASCORBIC ACID
  2. VITAMIN B12 [Concomitant]
     Active Substance: CYANOCOBALAMIN
  3. PROLIA [Suspect]
     Active Substance: DENOSUMAB
     Indication: OSTEOPOROSIS
     Dosage: ROUTE - INJECTION GIVEN IN NY?FREQUENCY - 2 X PER YEAR.
     Dates: start: 20180125, end: 20180125
  4. FISH OIL [Concomitant]
     Active Substance: FISH OIL
  5. 81 MG ASPIRIN [Concomitant]
     Active Substance: ASPIRIN
  6. GABAPENTIN. [Concomitant]
     Active Substance: GABAPENTIN
  7. CRANBERRY. [Concomitant]
     Active Substance: CRANBERRY
  8. MULTI VITAMIN [Concomitant]
     Active Substance: VITAMINS
  9. COQ10 [Concomitant]
     Active Substance: UBIDECARENONE
  10. VITAMIN B [Concomitant]
     Active Substance: VITAMIN B
  11. TUMERIC [Concomitant]
     Active Substance: HERBALS\TURMERIC
  12. B50 [Concomitant]
  13. LEXAPRO [Concomitant]
     Active Substance: ESCITALOPRAM OXALATE
  14. XANAX [Concomitant]
     Active Substance: ALPRAZOLAM

REACTIONS (6)
  - Burning sensation [None]
  - Anxiety [None]
  - Neuralgia [None]
  - Flushing [None]
  - Injection site pain [None]
  - Pain [None]

NARRATIVE: CASE EVENT DATE: 20180125
